FAERS Safety Report 7064288-3 (Version None)
Quarter: 2010Q4

REPORT INFORMATION
  Report Type: 
  Country: None (occurrence: None)
  Receive Date: 20101025
  Receipt Date: 20101025
  Transmission Date: 20110411
  Serious: Yes (Life-Threatening, Hospitalization, Disabling)
  Sender: FDA-Public Use
  Company Number: None

PATIENT
  Age: 48 Year
  Sex: Female
  Weight: 64.8644 kg

DRUGS (5)
  1. AVONEX [Suspect]
     Indication: MULTIPLE SCLEROSIS
     Dosage: 30 MCG/0.5 ML WEEKLY IM
     Route: 030
     Dates: start: 20100302, end: 20100802
  2. NEURONTIN [Suspect]
  3. BACLOFEN [Concomitant]
  4. LISINOPRIL [Concomitant]
  5. VICODIN [Concomitant]

REACTIONS (2)
  - CARDIAC VALVE DISEASE [None]
  - MYOCARDIAL INFARCTION [None]
